FAERS Safety Report 5131652-9 (Version None)
Quarter: 2006Q4

REPORT INFORMATION
  Report Type: 
  Country: None (occurrence: None)
  Receive Date: 20061020
  Receipt Date: 20060620
  Transmission Date: 20070319
  Serious: Yes (Death, Hospitalization)
  Sender: FDA-Public Use
  Company Number: TR-ABBOTT-06P-161-0336566-00

PATIENT
  Sex: Female
  Weight: 44 kg

DRUGS (4)
  1. HUMIRA [Suspect]
     Indication: RHEUMATOID ARTHRITIS
     Route: 058
     Dates: start: 20060404, end: 20060614
  2. PREDNISOLONE [Concomitant]
     Indication: RHEUMATOID ARTHRITIS
     Route: 048
     Dates: start: 20010101, end: 20060614
  3. METHOTREXATE [Concomitant]
     Indication: RHEUMATOID ARTHRITIS
     Route: 048
     Dates: start: 20010101, end: 20060614
  4. COLCHICINE [Concomitant]
     Indication: AMYLOIDOSIS
     Route: 048
     Dates: start: 20040101, end: 20060614

REACTIONS (7)
  - CARDIO-RESPIRATORY ARREST [None]
  - DYSPNOEA [None]
  - OEDEMA [None]
  - PAIN [None]
  - PYREXIA [None]
  - RASH [None]
  - SEPSIS [None]
